FAERS Safety Report 9760958 (Version 1)
Quarter: 2013Q4

REPORT INFORMATION
  Report Type: Spontaneous
  Country: US (occurrence: US)
  Receive Date: 20131216
  Receipt Date: 20131216
  Transmission Date: 20140711
  Serious: No
  Sender: FDA-Public Use
  Company Number: US-PFIZER INC-2013357622

PATIENT
  Sex: Female
  Weight: 48.98 kg

DRUGS (3)
  1. LYRICA [Suspect]
     Indication: POST HERPETIC NEURALGIA
     Dosage: 50 MG, 3X/DAY
     Dates: start: 2011
  2. LYRICA [Suspect]
     Indication: HERPES ZOSTER
     Dosage: 50 MG, 2X/DAY
     Dates: start: 201311
  3. LYRICA [Suspect]
     Indication: PAIN
     Dosage: 50 MG, DAILY
     Dates: start: 201312, end: 20131209

REACTIONS (8)
  - Drug withdrawal syndrome [Not Recovered/Not Resolved]
  - Insomnia [Not Recovered/Not Resolved]
  - Nausea [Not Recovered/Not Resolved]
  - Diarrhoea [Not Recovered/Not Resolved]
  - Feeling abnormal [Not Recovered/Not Resolved]
  - Nervousness [Not Recovered/Not Resolved]
  - Dizziness [Not Recovered/Not Resolved]
  - Headache [Not Recovered/Not Resolved]
